FAERS Safety Report 7216695-3 (Version None)
Quarter: 2011Q1

REPORT INFORMATION
  Report Type: 
  Country: None (occurrence: None)
  Receive Date: 20110110
  Receipt Date: 20101228
  Transmission Date: 20110831
  Serious: No
  Sender: FDA-Public Use
  Company Number: US-BIOGENIDEC-2011BI000471

PATIENT
  Age: 61 Year
  Sex: Female

DRUGS (3)
  1. TYSABRI [Suspect]
     Indication: MULTIPLE SCLEROSIS
     Route: 042
     Dates: start: 20091223
  2. TYSABRI [Suspect]
     Route: 042
     Dates: start: 20050121, end: 20050301
  3. TYSABRI [Suspect]
     Route: 042
     Dates: start: 20070629, end: 20090803

REACTIONS (1)
  - HEADACHE [None]
